FAERS Safety Report 24048587 (Version 6)
Quarter: 2024Q3

REPORT INFORMATION
  Report Type: Report from Study
  Country: FR (occurrence: FR)
  Receive Date: 20240704
  Receipt Date: 20240830
  Transmission Date: 20241017
  Serious: Yes (Other)
  Sender: BIOGEN
  Company Number: FR-BIOGEN-2024BI01271514

PATIENT
  Age: 50 Year
  Sex: Male
  Weight: 99 kg

DRUGS (3)
  1. TOFERSEN [Suspect]
     Active Substance: TOFERSEN
     Indication: Amyotrophic lateral sclerosis
     Dosage: ATRAUMATIC NEEDLE USED
     Route: 050
     Dates: start: 20240208
  2. RILUZOLE [Concomitant]
     Active Substance: RILUZOLE
     Indication: Amyotrophic lateral sclerosis
     Route: 050
     Dates: start: 20190708
  3. INSULIN NOS [Concomitant]
     Active Substance: INSULIN NOS
     Indication: Product used for unknown indication
     Route: 050
     Dates: start: 2006

REACTIONS (2)
  - Encephalitis [Not Recovered/Not Resolved]
  - HaNDL syndrome [Unknown]

NARRATIVE: CASE EVENT DATE: 20240430
